FAERS Safety Report 26139403 (Version 1)
Quarter: 2025Q4

REPORT INFORMATION
  Report Type: Other
  Country: GB (occurrence: GB)
  Receive Date: 20251210
  Receipt Date: 20251210
  Transmission Date: 20260118
  Serious: Yes (Other)
  Sender: GLENMARK
  Company Number: None

PATIENT
  Age: 44 Year
  Sex: Male
  Weight: 104 kg

DRUGS (6)
  1. EZETIMIBE [Suspect]
     Active Substance: EZETIMIBE
     Indication: Product used for unknown indication
     Dosage: 10 MILLIGRAM, OD
     Route: 065
     Dates: start: 20251105
  2. ROSUVASTATIN CALCIUM [Suspect]
     Active Substance: ROSUVASTATIN CALCIUM
     Indication: Product used for unknown indication
     Dosage: 1 DOSAGE FORM, OD
     Route: 065
     Dates: start: 20251105
  3. Nystaform hc [Concomitant]
     Indication: Product used for unknown indication
     Dosage: 60 GRAM EVERY 12 HOURS (APPLY TWICE DAILY (BD) TO UMBILICUS)
     Route: 065
     Dates: start: 20250904, end: 20251017
  4. CHOLECALCIFEROL [Concomitant]
     Active Substance: CHOLECALCIFEROL
     Indication: Product used for unknown indication
     Dosage: 1 DOSAGE FORM (1 CAPSULE TWICE A WEEK FOR 10 WEEKS)
     Route: 065
     Dates: start: 20251022
  5. NAPROXEN [Concomitant]
     Active Substance: NAPROXEN
     Indication: Product used for unknown indication
     Dosage: UNK UNK, BID (1 OR 2 TABLETS TWICE DAILY (BD)
     Route: 065
     Dates: start: 20251105
  6. ASPIRIN [Concomitant]
     Active Substance: ASPIRIN
     Indication: Product used for unknown indication
     Dosage: 1 DOSAGE FORM, OD
     Route: 065
     Dates: start: 20251105

REACTIONS (2)
  - Drug interaction [Unknown]
  - Myalgia [Recovered/Resolved]
